FAERS Safety Report 9581377 (Version 1)
Quarter: 2013Q4

REPORT INFORMATION
  Report Type: Spontaneous
  Country: DE (occurrence: DE)
  Receive Date: 20131002
  Receipt Date: 20131002
  Transmission Date: 20140711
  Serious: Yes (Other)
  Sender: FDA-Public Use
  Company Number: DE-GLAXOSMITHKLINE-D0081246A

PATIENT
  Age: 77 Year
  Sex: Female

DRUGS (4)
  1. ARIXTRA [Suspect]
     Dosage: 7.5MG PER DAY
     Route: 058
     Dates: start: 20130412, end: 20130421
  2. ASS [Suspect]
     Route: 065
  3. HEPARIN [Suspect]
     Indication: THROMBOSIS PROPHYLAXIS
     Route: 058
     Dates: start: 20130418
  4. MULTIPLE MEDICATION [Concomitant]
     Route: 065

REACTIONS (5)
  - Erythema [Unknown]
  - Erysipelas [Unknown]
  - Muscle haemorrhage [Unknown]
  - Local swelling [Unknown]
  - Skin warm [Unknown]
